FAERS Safety Report 10268467 (Version 1)
Quarter: 2014Q2

REPORT INFORMATION
  Report Type: Spontaneous
  Country: US (occurrence: None)
  Receive Date: 20140626
  Receipt Date: 20140626
  Transmission Date: 20141212
  Serious: Yes (Hospitalization)
  Sender: FDA-Public Use
  Company Number: None

PATIENT
  Age: 49 Year
  Sex: Female
  Weight: 42.4 kg

DRUGS (2)
  1. PASIREOTIDE [Suspect]
     Indication: THYROID CANCER
     Dosage: THIS PATIENT NEVER RECEIVED STUDY DRUGS
  2. EVEROLIMUS [Suspect]
     Indication: THYROID CANCER
     Dosage: THIS PATIENT NEVER RECEIVED STUDY DRUGS

REACTIONS (4)
  - Nausea [None]
  - Vomiting [None]
  - Diarrhoea [None]
  - Hypocalcaemia [None]
